FAERS Safety Report 10421104 (Version 1)
Quarter: 2014Q3

REPORT INFORMATION
  Report Type: Spontaneous
  Country: US (occurrence: None)
  Receive Date: 20140722
  Receipt Date: 20140722
  Transmission Date: 20150326
  Serious: No
  Sender: FDA-Public Use
  Company Number: 163-10004-14055659

PATIENT
  Age: 60 Year
  Sex: Female
  Weight: 112.49 kg

DRUGS (1)
  1. OTEZLA [Suspect]
     Active Substance: APREMILAST
     Indication: PRODUCT USED FOR UNKNOWN INDICATION
     Route: 048
     Dates: start: 20140515

REACTIONS (4)
  - Nausea [None]
  - Insomnia [None]
  - Diarrhoea [None]
  - Mood swings [None]

NARRATIVE: CASE EVENT DATE: 2014
